FAERS Safety Report 6461973-9 (Version None)
Quarter: 2009Q4

REPORT INFORMATION
  Report Type: 
  Country: None (occurrence: None)
  Receive Date: 20091024
  Receipt Date: 20091109
  Transmission Date: 20100525
  Serious: Yes (Death, Hospitalization)
  Sender: FDA-Public Use
  Company Number: 2009AC000320

PATIENT
  Sex: Male

DRUGS (21)
  1. DIGOXIN [Suspect]
     Dosage: PO
     Dates: start: 20080209
  2. LIPITOR [Concomitant]
  3. LASIX [Concomitant]
  4. K-DUR [Concomitant]
  5. LOPRESSOR [Concomitant]
  6. LISINOPRIL [Concomitant]
  7. PREVACID [Concomitant]
  8. CALCITRIOL [Concomitant]
  9. SODIUM BICARBONATE IN PLASTIC CONTAINER [Concomitant]
  10. LANTUS [Concomitant]
  11. ASPIRIN [Concomitant]
  12. NITROGLYCERIN [Concomitant]
  13. CLINDAMYCIN [Concomitant]
  14. LEVAQUIN [Concomitant]
  15. PROCRIT INJECTIONS [Concomitant]
  16. MINITRAN PATCH [Concomitant]
  17. PLAVIX [Concomitant]
  18. SODIUM BICARB [Concomitant]
  19. LORTAB [Concomitant]
  20. ZOSYN [Concomitant]
  21. MORPHINE [Concomitant]

REACTIONS (18)
  - CARDIAC FAILURE [None]
  - CARDIAC FAILURE CONGESTIVE [None]
  - DECUBITUS ULCER [None]
  - DIALYSIS [None]
  - DIARRHOEA [None]
  - DYSPNOEA [None]
  - ECONOMIC PROBLEM [None]
  - EJECTION FRACTION DECREASED [None]
  - MULTIPLE INJURIES [None]
  - MYOCARDIAL INFARCTION [None]
  - NAUSEA [None]
  - PLEURAL EFFUSION [None]
  - RENAL FAILURE [None]
  - RENAL FAILURE CHRONIC [None]
  - SURGERY [None]
  - THERAPEUTIC AGENT TOXICITY [None]
  - URINARY TRACT INFECTION [None]
  - VOMITING [None]
